FAERS Safety Report 8451029-8 (Version None)
Quarter: 2012Q2

REPORT INFORMATION
  Report Type: 
  Country: None (occurrence: None)
  Receive Date: 20120613
  Receipt Date: 20120607
  Transmission Date: 20120825
  Serious: Yes (Death)
  Sender: FDA-Public Use
  Company Number: DSA_57768_2012

PATIENT
  Sex: Female

DRUGS (1)
  1. XENAZINE [Suspect]
     Indication: HUNTINGTON'S DISEASE
     Dosage: (12.5 MG (1 TAB EACH MORNING, 1/2 TAB MIDDAY, AND 1 TAB EACH EVENING) ORAL)
     Route: 048
     Dates: start: 20111201

REACTIONS (1)
  - DEATH [None]
